FAERS Safety Report 5321540-7 (Version None)
Quarter: 2007Q1

REPORT INFORMATION
  Report Type: 
  Country: None (occurrence: None)
  Receive Date: 20070220
  Receipt Date: 20061030
  Transmission Date: 20070707
  Serious: No
  Sender: FDA-Public Use
  Company Number: TPA2006A01940

PATIENT
  Age: 74 Year
  Sex: Female
  Weight: 47.6277 kg

DRUGS (7)
  1. ROZEREM [Suspect]
     Indication: INSOMNIA
     Dosage: 8 MG, QHS, PER ORAL
     Route: 048
     Dates: start: 20061025
  2. PRILOSEC [Concomitant]
  3. LIPITOR [Concomitant]
  4. DICLOFENAC (DICLOFENAC) [Concomitant]
  5. ASPIRIN [Concomitant]
  6. MIACALCIN [Concomitant]
  7. MULTIVITAMIN [Concomitant]

REACTIONS (2)
  - DRUG INEFFECTIVE [None]
  - MIDDLE INSOMNIA [None]
